FAERS Safety Report 4567172-X (Version None)
Quarter: 2005Q1

REPORT INFORMATION
  Report Type: 
  Country: None (occurrence: None)
  Receive Date: 20050201
  Receipt Date: 20050105
  Transmission Date: 20050727
  Serious: Yes (Life-Threatening, Disabling, Other)
  Sender: FDA-Public Use
  Company Number: US-GLAXOSMITHKLINE-A0539482A

PATIENT
  Age: 59 Year
  Sex: Male
  Weight: 51.8 kg

DRUGS (5)
  1. COMBIVIR [Suspect]
     Indication: HIV INFECTION
     Dosage: 1TAB TWICE PER DAY
     Route: 048
  2. VIRACEPT [Concomitant]
     Indication: HIV INFECTION
     Dosage: 625MG TWICE PER DAY
  3. ZITHROMAX [Concomitant]
     Indication: TUBERCULOSIS PROPHYLAXIS
     Dosage: 1200MG WEEKLY
  4. BACTRIM DS [Concomitant]
  5. SPORANOX [Concomitant]
     Dosage: 200MG TWICE PER DAY

REACTIONS (2)
  - CD4 LYMPHOCYTES DECREASED [None]
  - VIRAL LOAD INCREASED [None]
